FAERS Safety Report 10868948 (Version 2)
Quarter: 2015Q1

REPORT INFORMATION
  Report Type: Spontaneous
  Country: US (occurrence: US)
  Receive Date: 20150225
  Receipt Date: 20150303
  Transmission Date: 20150721
  Serious: Yes (Hospitalization, Other)
  Sender: FDA-Public Use
  Company Number: US-FRI-1000074747

PATIENT
  Age: 67 Year
  Sex: Female

DRUGS (3)
  1. LINZESS [Suspect]
     Active Substance: LINACLOTIDE
     Indication: CONSTIPATION
     Dosage: 145 MCG
     Dates: start: 201410
  2. METHENAMINE [Concomitant]
     Active Substance: METHENAMINE
     Dosage: 1 G
  3. LIPITOR [Concomitant]
     Active Substance: ATORVASTATIN CALCIUM
     Dosage: 20 MG

REACTIONS (3)
  - Diarrhoea [Recovered/Resolved]
  - Pancreatitis [Not Recovered/Not Resolved]
  - Pancreatic enzymes increased [Not Recovered/Not Resolved]

NARRATIVE: CASE EVENT DATE: 201410
